FAERS Safety Report 19686343 (Version 1)
Quarter: 2021Q3

REPORT INFORMATION
  Report Type: Spontaneous
  Country: US (occurrence: US)
  Receive Date: 20210811
  Receipt Date: 20210811
  Transmission Date: 20211014
  Serious: Yes (Other)
  Sender: FDA-Public Use
  Company Number: US-SA-2021SA263781

PATIENT
  Age: 45 Year
  Sex: Female

DRUGS (1)
  1. ZANTAC [Suspect]
     Active Substance: RANITIDINE HYDROCHLORIDE
     Indication: GASTRIC ULCER
     Dosage: 75 MG, FREQUENCY: OTHER
     Dates: start: 200401, end: 201101

REACTIONS (2)
  - Oesophageal carcinoma [Recovered/Resolved]
  - Breast cancer stage II [Unknown]

NARRATIVE: CASE EVENT DATE: 20110101
